FAERS Safety Report 4975293-2 (Version None)
Quarter: 2006Q2

REPORT INFORMATION
  Report Type: 
  Country: None (occurrence: None)
  Receive Date: 20060417
  Receipt Date: 20060417
  Transmission Date: 20061013
  Serious: Yes (Other)
  Sender: FDA-Public Use
  Company Number: None

PATIENT
  Age: 88 Year
  Sex: Male
  Weight: 82.6 kg

DRUGS (7)
  1. METORPOLOL [Suspect]
  2. BENAZEPRIL HCL [Concomitant]
  3. SIMVASTATIN [Concomitant]
  4. METOPROLOL TARTRATE [Concomitant]
  5. HYDROCHLOROTHIAZIDE [Concomitant]
  6. TERAZOSIN HCL [Concomitant]
  7. FOLIC ACID [Concomitant]

REACTIONS (1)
  - HYPOAESTHESIA [None]
